FAERS Safety Report 19770370 (Version 1)
Quarter: 2021Q3

REPORT INFORMATION
  Report Type: Spontaneous
  Country: US (occurrence: US)
  Receive Date: 20210901
  Receipt Date: 20210901
  Transmission Date: 20211014
  Serious: No
  Sender: FDA-Public Use
  Company Number: US-GLAXOSMITHKLINE-US2021180805

PATIENT
  Sex: Female

DRUGS (1)
  1. TRELEGY ELLIPTA [Suspect]
     Active Substance: FLUTICASONE FUROATE\UMECLIDINIUM BROMIDE\VILANTEROL TRIFENATATE
     Indication: PRODUCT USED FOR UNKNOWN INDICATION
     Dosage: UNK
     Dates: start: 2021

REACTIONS (10)
  - Dyspnoea exertional [Not Recovered/Not Resolved]
  - Swollen tongue [Recovering/Resolving]
  - Extra dose administered [Not Recovered/Not Resolved]
  - Product dose omission issue [Unknown]
  - Wheezing [Not Recovered/Not Resolved]
  - Oral pain [Recovering/Resolving]
  - Taste disorder [Not Recovered/Not Resolved]
  - Secretion discharge [Recovered/Resolved]
  - Gait inability [Unknown]
  - Therapeutic product effect decreased [Not Recovered/Not Resolved]

NARRATIVE: CASE EVENT DATE: 2021
